FAERS Safety Report 24977797 (Version 3)
Quarter: 2025Q1

REPORT INFORMATION
  Report Type: Spontaneous
  Country: BY (occurrence: BY)
  Receive Date: 20250217
  Receipt Date: 20250327
  Transmission Date: 20250409
  Serious: Yes (Other)
  Sender: NOVARTIS
  Company Number: BY-002147023-NVSC2025BY026331

PATIENT
  Sex: Female
  Weight: 49 kg

DRUGS (6)
  1. TRILEPTAL [Suspect]
     Active Substance: OXCARBAZEPINE
     Indication: Trichotillomania
     Dosage: 150 MG, QD
     Route: 048
     Dates: start: 20241217, end: 20250117
  2. TRILEPTAL [Suspect]
     Active Substance: OXCARBAZEPINE
     Indication: Irritable bowel syndrome
     Dosage: 150 MG, BID
     Route: 048
     Dates: start: 20250117
  3. TRILEPTAL [Suspect]
     Active Substance: OXCARBAZEPINE
     Dosage: 300 MG, QD
     Route: 065
     Dates: start: 20250118
  4. SERTRALINE HYDROCHLORIDE [Suspect]
     Active Substance: SERTRALINE HYDROCHLORIDE
     Indication: Product used for unknown indication
     Dosage: 100 MG, QD
     Route: 065
  5. VITAMIN D [Concomitant]
     Active Substance: VITAMIN D NOS
     Indication: Product used for unknown indication
     Route: 065
  6. SERTRALINE [Concomitant]
     Active Substance: SERTRALINE HYDROCHLORIDE
     Indication: Product used for unknown indication
     Route: 065
     Dates: start: 202306

REACTIONS (1)
  - Drug effective for unapproved indication [Recovering/Resolving]
